FAERS Safety Report 4414238-0 (Version None)
Quarter: 2004Q3

REPORT INFORMATION
  Report Type: 
  Country: None (occurrence: None)
  Receive Date: 20040728
  Receipt Date: 20040708
  Transmission Date: 20050211
  Serious: Yes (Hospitalization)
  Sender: FDA-Public Use
  Company Number: 2004-118267-NL

PATIENT
  Age: 54 Year

DRUGS (1)
  1. UFH [Suspect]
     Indication: ACUTE CORONARY SYNDROME
     Dates: start: 20040514

REACTIONS (2)
  - ACUTE MYOCARDIAL INFARCTION [None]
  - CORONARY ARTERY THROMBOSIS [None]
